FAERS Safety Report 4588332-8 (Version None)
Quarter: 2005Q1

REPORT INFORMATION
  Report Type: 
  Country: None (occurrence: None)
  Receive Date: 20050215
  Receipt Date: 20050215
  Transmission Date: 20050727
  Serious: No
  Sender: FDA-Public Use
  Company Number: None

PATIENT
  Age: 58 Year
  Sex: Male
  Weight: 54.5677 kg

DRUGS (9)
  1. PROTAMINE SULFATE [Suspect]
     Dates: start: 20050112
  2. SIMVASTATIN [Concomitant]
  3. ASPIRIN [Concomitant]
  4. DIPYRIDAMOLE [Concomitant]
  5. FOLIC ACID [Concomitant]
  6. LISINOPRIL [Concomitant]
  7. ZANTAC [Concomitant]
  8. ATENOLOL [Concomitant]
  9. LASIX [Concomitant]

REACTIONS (8)
  - CARDIAC OUTPUT DECREASED [None]
  - HYPOTENSION [None]
  - NO THERAPEUTIC RESPONSE [None]
  - PROLONGED EXPIRATION [None]
  - PULMONARY ARTERIAL PRESSURE ABNORMAL [None]
  - PULMONARY ARTERIAL WEDGE PRESSURE DECREASED [None]
  - VASODILATATION [None]
  - VENTRICULAR DYSFUNCTION [None]
